FAERS Safety Report 12311318 (Version 2)
Quarter: 2016Q2

REPORT INFORMATION
  Report Type: Spontaneous
  Country: JP (occurrence: JP)
  Receive Date: 20160427
  Receipt Date: 20160526
  Transmission Date: 20160815
  Serious: Yes (Life-Threatening, Hospitalization, Other)
  Sender: FDA-Public Use
  Company Number: JP-BAYER-2016-079701

PATIENT
  Age: 74 Year
  Sex: Male
  Weight: 73 kg

DRUGS (18)
  1. BAYASPIRIN [Suspect]
     Active Substance: ASPIRIN
     Indication: MYOCARDIAL INFARCTION
     Dosage: UNK
     Route: 048
     Dates: start: 20151209, end: 20160331
  2. TANATRIL [Concomitant]
     Active Substance: IMIDAPRIL
     Indication: MYOCARDIAL ISCHAEMIA
     Dosage: 5 MG, QD
     Route: 048
     Dates: start: 19920202, end: 20160418
  3. ADALAT CC [Concomitant]
     Active Substance: NIFEDIPINE
     Indication: MYOCARDIAL ISCHAEMIA
     Dosage: 40 MG, QD
     Route: 048
     Dates: start: 19920202
  4. TANATRIL [Concomitant]
     Active Substance: IMIDAPRIL
     Indication: MYOCARDIAL INFARCTION
  5. BAYASPIRIN [Suspect]
     Active Substance: ASPIRIN
     Indication: MYOCARDIAL ISCHAEMIA
     Dosage: 100 MG, QD
     Route: 048
     Dates: start: 19920202, end: 20151205
  6. BAYASPIRIN [Suspect]
     Active Substance: ASPIRIN
     Indication: MYOCARDIAL ISCHAEMIA
     Dosage: 100 MG, UNK
     Route: 048
     Dates: start: 20160422
  7. ALDACTONE A [Concomitant]
     Active Substance: SPIRONOLACTONE
     Indication: MYOCARDIAL INFARCTION
  8. LIVALO [Concomitant]
     Active Substance: PITAVASTATIN CALCIUM
     Indication: MYOCARDIAL INFARCTION
  9. ALDACTONE A [Concomitant]
     Active Substance: SPIRONOLACTONE
     Indication: MYOCARDIAL ISCHAEMIA
     Dosage: 25 MG, QD
     Route: 048
     Dates: start: 19920202, end: 20160418
  10. MICARDIS [Concomitant]
     Active Substance: TELMISARTAN
     Indication: ASTHMA
     Dosage: 80 MG, QD
     Route: 048
     Dates: start: 19920202, end: 20160418
  11. LIVALO [Concomitant]
     Active Substance: PITAVASTATIN CALCIUM
     Indication: MYOCARDIAL ISCHAEMIA
     Dosage: 1 MG, QD
     Route: 048
     Dates: start: 19920202
  12. ADALAT CC [Concomitant]
     Active Substance: NIFEDIPINE
     Indication: MYOCARDIAL INFARCTION
  13. MAINTATE [Concomitant]
     Active Substance: BISOPROLOL FUMARATE
     Indication: MYOCARDIAL ISCHAEMIA
     Dosage: 25 MG, QD
     Route: 048
     Dates: start: 19920202
  14. MAINTATE [Concomitant]
     Active Substance: BISOPROLOL FUMARATE
     Indication: MYOCARDIAL INFARCTION
  15. FLUTICASONE FUROATE [Concomitant]
     Active Substance: FLUTICASONE FUROATE
     Indication: ASTHMA
     Dosage: 200 ?G, QD
     Route: 055
     Dates: start: 201312
  16. URINORM [Concomitant]
     Active Substance: BENZBROMARONE
     Indication: MYOCARDIAL ISCHAEMIA
     Dosage: 25 MG, QD
     Route: 048
     Dates: start: 19920202
  17. URINORM [Concomitant]
     Active Substance: BENZBROMARONE
     Indication: MYOCARDIAL INFARCTION
  18. PANALDINE [Concomitant]
     Active Substance: TICLOPIDINE HYDROCHLORIDE
     Dosage: 200 MG, QD
     Route: 048
     Dates: start: 19920202, end: 20151205

REACTIONS (4)
  - Acute respiratory failure [Recovering/Resolving]
  - Lung disorder [Recovered/Resolved]
  - Interstitial lung disease [Recovering/Resolving]
  - Haemoptysis [Recovering/Resolving]

NARRATIVE: CASE EVENT DATE: 201512
